FAERS Safety Report 9962704 (Version 3)
Quarter: 2015Q1

REPORT INFORMATION
  Report Type: Report from Study
  Country: US (occurrence: US)
  Receive Date: 20140305
  Receipt Date: 20150216
  Transmission Date: 20150721
  Serious: No
  Sender: FDA-Public Use
  Company Number: US-ABBVIE-13P-163-1038241-00

PATIENT
  Sex: Female
  Weight: 54.48 kg

DRUGS (12)
  1. PREDNISONE. [Suspect]
     Active Substance: PREDNISONE
  2. SOMA [Concomitant]
     Active Substance: CARISOPRODOL
     Indication: NECK INJURY
  3. VITAMIN D [Concomitant]
     Active Substance: CHOLECALCIFEROL
     Indication: PRODUCT USED FOR UNKNOWN INDICATION
  4. CALCIUM WITH VITAMIN D [Concomitant]
     Active Substance: CALCIUM\VITAMIN D
     Indication: PRODUCT USED FOR UNKNOWN INDICATION
  5. PREDNISONE. [Suspect]
     Active Substance: PREDNISONE
     Indication: RHEUMATOID ARTHRITIS
  6. METHOTREXATE [Concomitant]
     Active Substance: METHOTREXATE
     Indication: PRODUCT USED FOR UNKNOWN INDICATION
  7. ASPIRIN. [Concomitant]
     Active Substance: ASPIRIN
     Indication: PRODUCT USED FOR UNKNOWN INDICATION
  8. MOBIC [Concomitant]
     Active Substance: MELOXICAM
     Indication: NECK PAIN
  9. TRAMADOL [Concomitant]
     Active Substance: TRAMADOL
     Indication: NECK INJURY
  10. HUMIRA [Suspect]
     Active Substance: ADALIMUMAB
     Indication: RHEUMATOID ARTHRITIS
     Dates: start: 2012
  11. MOBIC [Concomitant]
     Active Substance: MELOXICAM
     Indication: NECK INJURY
  12. FOLIC ACID. [Concomitant]
     Active Substance: FOLIC ACID
     Indication: PRODUCT USED FOR UNKNOWN INDICATION

REACTIONS (3)
  - Weight increased [Not Recovered/Not Resolved]
  - Injection site pain [Recovered/Resolved]
  - Injection site pain [Not Recovered/Not Resolved]

NARRATIVE: CASE EVENT DATE: 2012
